FAERS Safety Report 13721171 (Version 1)
Quarter: 2017Q3

REPORT INFORMATION
  Report Type: Spontaneous
  Country: US (occurrence: US)
  Receive Date: 20170705
  Receipt Date: 20170705
  Transmission Date: 20171127
  Serious: Yes (Hospitalization, Other)
  Sender: FDA-Public Use
  Company Number: None

PATIENT
  Age: 68 Year
  Sex: Female
  Weight: 70.2 kg

DRUGS (3)
  1. CLONAZEPAM. [Suspect]
     Active Substance: CLONAZEPAM
     Indication: ANXIETY DISORDER
     Dosage: ?          OTHER STRENGTH:MG;QUANTITY:2 TABLET(S);?
     Route: 048
     Dates: start: 20070131, end: 20160521
  2. METOPROLOL. [Concomitant]
     Active Substance: METOPROLOL
  3. UNISOM SLEEPTABS [Concomitant]
     Active Substance: DOXYLAMINE SUCCINATE

REACTIONS (13)
  - Diarrhoea [None]
  - Vertigo [None]
  - Quality of life decreased [None]
  - Condition aggravated [None]
  - Panic reaction [None]
  - Withdrawal syndrome [None]
  - Malaise [None]
  - Loss of personal independence in daily activities [None]
  - Hyperhidrosis [None]
  - Abdominal pain upper [None]
  - Nausea [None]
  - Insomnia [None]
  - Gait disturbance [None]

NARRATIVE: CASE EVENT DATE: 20160521
